FAERS Safety Report 21027436 (Version 1)
Quarter: 2022Q2

REPORT INFORMATION
  Report Type: Spontaneous
  Country: US (occurrence: US)
  Receive Date: 20220630
  Receipt Date: 20220630
  Transmission Date: 20220721
  Serious: No
  Sender: FDA-Public Use
  Company Number: US-BRISTOL-MYERS SQUIBB COMPANY-2022-065765

PATIENT
  Age: 54 Year
  Sex: Female
  Weight: 87.08 kg

DRUGS (1)
  1. REVLIMID [Suspect]
     Active Substance: LENALIDOMIDE
     Indication: Plasma cell myeloma
     Dosage: FREQ - 21 D OF A 28 D CYCLE.
     Route: 048

REACTIONS (2)
  - Oral pain [Unknown]
  - Dyspepsia [Unknown]
